FAERS Safety Report 12311381 (Version 1)
Quarter: 2016Q2

REPORT INFORMATION
  Report Type: Other
  Country: TW (occurrence: TW)
  Receive Date: 20160427
  Receipt Date: 20160427
  Transmission Date: 20160815
  Serious: Yes (Death)
  Sender: FDA-Public Use
  Company Number: TW-IGI LABORATORIES, INC.-1051099

PATIENT
  Age: 5 Month
  Sex: Female

DRUGS (5)
  1. AMIKACIN SULFATE. [Suspect]
     Active Substance: AMIKACIN SULFATE
     Route: 065
  2. FORTAZ [Suspect]
     Active Substance: CEFTAZIDIME SODIUM
     Indication: KLEBSIELLA SEPSIS
     Route: 065
  3. CEFTRIAXONE. [Suspect]
     Active Substance: CEFTRIAXONE
     Route: 065
  4. MEROPENEM. [Suspect]
     Active Substance: MEROPENEM
     Route: 065
  5. IMMUNOGLOBULIN THERAPY [Concomitant]
     Route: 065

REACTIONS (1)
  - Drug ineffective [Fatal]
